FAERS Safety Report 25215252 (Version 1)
Quarter: 2025Q2

REPORT INFORMATION
  Report Type: Spontaneous
  Country: IN (occurrence: IN)
  Receive Date: 20250418
  Receipt Date: 20250418
  Transmission Date: 20250716
  Serious: Yes (Other)
  Sender: TAKEDA
  Company Number: IN-TAKEDA-2022TUS080988

PATIENT
  Age: 28 Year
  Sex: Male
  Weight: 70 kg

DRUGS (1)
  1. HUMAN IMMUNOGLOBULIN G [Suspect]
     Active Substance: HUMAN IMMUNOGLOBULIN G
     Indication: Guillain-Barre syndrome

REACTIONS (2)
  - Haemolytic anaemia [Unknown]
  - Haemolysis [Unknown]
